FAERS Safety Report 8217207-8 (Version None)
Quarter: 2012Q1

REPORT INFORMATION
  Report Type: 
  Country: None (occurrence: None)
  Receive Date: 20120319
  Receipt Date: 20120313
  Transmission Date: 20120608
  Serious: Yes (Other)
  Sender: FDA-Public Use
  Company Number: ES-ACCORD-009786

PATIENT
  Age: 52 Year
  Sex: Female

DRUGS (4)
  1. GRAPEFRUIT JUICE [Suspect]
     Dosage: (APPROX ~250 ML) OF GFJ DAILY
     Dates: start: 20100401
  2. GEMCITABINE [Concomitant]
     Indication: OESOPHAGEAL SQUAMOUS CELL CARCINOMA
     Dosage: 30 MIN I.V. INFUSION OF GEMCITABINE (800 MG/M2)
     Route: 042
  3. DOCETAXEL [Suspect]
     Indication: OESOPHAGEAL SQUAMOUS CELL CARCINOMA
     Dosage: 1 H I.V. INFUSION OF DOCETAXEL (40 MG/M2),
     Route: 042
     Dates: start: 20100401
  4. DOXORUBICIN HCL [Concomitant]
     Indication: OESOPHAGEAL SQUAMOUS CELL CARCINOMA
     Dosage: 30 MIN I.V. INFUSION OF DOXORUBICIN (30 MG/M2)
     Route: 042

REACTIONS (2)
  - DRUG CLEARANCE DECREASED [None]
  - FOOD INTERACTION [None]
